FAERS Safety Report 21131197 (Version 1)
Quarter: 2022Q3

REPORT INFORMATION
  Report Type: Spontaneous
  Country: US (occurrence: US)
  Receive Date: 20220726
  Receipt Date: 20220726
  Transmission Date: 20221027
  Serious: Yes (Other)
  Sender: FDA-Public Use
  Company Number: US-SA-SAC20220725000966

PATIENT
  Age: 20 Year
  Sex: Male

DRUGS (7)
  1. ALPROLIX [Suspect]
     Active Substance: EFTRENONACOG ALFA
     Indication: Factor IX deficiency
     Dosage: 3000 UNIT, QW
     Route: 042
  2. ALPROLIX [Suspect]
     Active Substance: EFTRENONACOG ALFA
     Indication: Factor IX deficiency
     Dosage: 3000 UNIT, QW
     Route: 042
  3. ZYRTEC [Concomitant]
     Active Substance: CETIRIZINE HYDROCHLORIDE
  4. VENTOLIN [Concomitant]
     Active Substance: ALBUTEROL SULFATE
  5. NASONEX [Concomitant]
     Active Substance: MOMETASONE FUROATE
  6. ASMANEX [Concomitant]
     Active Substance: MOMETASONE FUROATE
  7. AMNESTEEM [Concomitant]
     Active Substance: ISOTRETINOIN

REACTIONS (1)
  - Haemorrhage [Recovered/Resolved]
